FAERS Safety Report 9723617 (Version 1)
Quarter: 2013Q4

REPORT INFORMATION
  Report Type: Spontaneous
  Country: RO (occurrence: RO)
  Receive Date: 20131202
  Receipt Date: 20131202
  Transmission Date: 20140711
  Serious: Yes (Hospitalization)
  Sender: FDA-Public Use
  Company Number: RO-SA-2013SA121811

PATIENT
  Age: 55 Year
  Sex: Female

DRUGS (6)
  1. INDAPAMIDE [Suspect]
     Indication: BLOOD PRESSURE
     Route: 065
  2. ENALAPRIL [Concomitant]
  3. ZOLPIDEM [Concomitant]
  4. MIRTAZAPINE [Concomitant]
  5. QUETIAPINE [Concomitant]
  6. METFORMIN [Concomitant]

REACTIONS (15)
  - Hyponatraemic encephalopathy [Recovered/Resolved]
  - Self-medication [Unknown]
  - Headache [Recovered/Resolved]
  - Confusional state [Recovered/Resolved]
  - Agitation [Recovered/Resolved]
  - Disorientation [Recovered/Resolved]
  - Cerebellar syndrome [Recovered/Resolved]
  - Blood potassium decreased [Recovered/Resolved]
  - Oedema [Recovered/Resolved]
  - Blood chloride decreased [Recovered/Resolved]
  - Blood glucose increased [Recovered/Resolved]
  - Blood osmolarity decreased [Recovered/Resolved]
  - Urine osmolarity decreased [Recovered/Resolved]
  - Duodenitis [Recovered/Resolved]
  - Left ventricular hypertrophy [Recovered/Resolved]
